FAERS Safety Report 19348295 (Version 1)
Quarter: 2021Q2

REPORT INFORMATION
  Report Type: Spontaneous
  Country: US (occurrence: US)
  Receive Date: 20210528
  Receipt Date: 20210528
  Transmission Date: 20210717
  Serious: No
  Sender: FDA-Public Use
  Company Number: None

PATIENT
  Age: 63 Year
  Sex: Female
  Weight: 56.7 kg

DRUGS (10)
  1. VITAMIN B/C [Concomitant]
  2. CENTRUM TAB [Concomitant]
  3. PROTONIX 40 MG TAB [Concomitant]
  4. CARVEDILOL 12.5 MG TAB [Concomitant]
  5. CAPECITABINE 500 MG TAB [Suspect]
     Active Substance: CAPECITABINE
     Indication: BREAST CANCER
     Route: 048
  6. LOPERAMIDE 2 MG TAB [Concomitant]
  7. TYLENOL 8 HR TAB [Concomitant]
  8. TUKYSA [Suspect]
     Active Substance: TUCATINIB
  9. POTASSIUM 10 MEQ TAB [Concomitant]
  10. ATORVASTATIN 20 MG TAB [Concomitant]

REACTIONS (1)
  - Therapy non-responder [None]
